FAERS Safety Report 5046455-3 (Version None)
Quarter: 2006Q3

REPORT INFORMATION
  Report Type: 
  Country: None (occurrence: None)
  Receive Date: 20060710
  Receipt Date: 20060703
  Transmission Date: 20061208
  Serious: Yes (Other)
  Sender: FDA-Public Use
  Company Number: 453385

PATIENT
  Age: 48 Year
  Sex: Male

DRUGS (2)
  1. DILATREND [Suspect]
     Indication: HYPERTENSION
     Dosage: 12.5MG PER DAY
     Route: 048
     Dates: start: 20051006, end: 20060329
  2. CILAZAPRIL [Concomitant]
     Indication: DRUG USE FOR UNKNOWN INDICATION
     Route: 048
     Dates: start: 20051006

REACTIONS (2)
  - ERECTILE DYSFUNCTION [None]
  - STRESS AT WORK [None]
